FAERS Safety Report 20736866 (Version 1)
Quarter: 2022Q2

REPORT INFORMATION
  Report Type: Spontaneous
  Country: IT (occurrence: IT)
  Receive Date: 20220421
  Receipt Date: 20220421
  Transmission Date: 20220721
  Serious: Yes (Other)
  Sender: FDA-Public Use
  Company Number: IT-ViiV Healthcare Limited-IT2022GSK050097

PATIENT
  Sex: Male

DRUGS (4)
  1. EMTRICITABINE\TENOFOVIR DISOPROXIL [Suspect]
     Active Substance: EMTRICITABINE\TENOFOVIR DISOPROXIL
     Indication: Antiretroviral therapy
     Dosage: UNK UNK, QD
  2. DOLUTEGRAVIR SODIUM [Suspect]
     Active Substance: DOLUTEGRAVIR SODIUM
     Indication: Antiretroviral therapy
     Dosage: 100 MILLIGRAM, QD (50 MG, BID)
  3. FOSTEMSAVIR TROMETHAMINE [Suspect]
     Active Substance: FOSTEMSAVIR TROMETHAMINE
     Indication: Antiretroviral therapy
     Dosage: 1200 MILLIGRAM, QD (600 MG, BID)
  4. DARUNAVIR\RITONAVIR [Suspect]
     Active Substance: DARUNAVIR\RITONAVIR
     Indication: Antiretroviral therapy
     Dosage: UNK UNK, BID

REACTIONS (6)
  - Pathogen resistance [Unknown]
  - Blood HIV RNA increased [Recovered/Resolved]
  - Viral mutation identified [Unknown]
  - Virologic failure [Unknown]
  - Drug resistance [Unknown]
  - Treatment noncompliance [Unknown]
